FAERS Safety Report 4792733-2 (Version None)
Quarter: 2005Q4

REPORT INFORMATION
  Report Type: 
  Country: None (occurrence: None)
  Receive Date: 20051010
  Receipt Date: 20050322
  Transmission Date: 20060501
  Serious: Yes (Death, Other)
  Sender: FDA-Public Use
  Company Number: US-MERCK-0503USA04213

PATIENT
  Age: 60 Year
  Sex: Female
  Weight: 41 kg

DRUGS (7)
  1. VIOXX [Suspect]
     Indication: RHEUMATOID ARTHRITIS
     Route: 048
     Dates: start: 20000101, end: 20040315
  2. FOSAMAX [Concomitant]
     Indication: OSTEOPOROSIS
     Route: 048
     Dates: start: 19971201, end: 20040315
  3. ATENOLOL [Concomitant]
     Indication: ANGINA PECTORIS
     Route: 065
     Dates: start: 19971201, end: 20040315
  4. SYNTHROID [Concomitant]
     Indication: HYPOTHYROIDISM
     Route: 065
     Dates: start: 19971201, end: 20040315
  5. PREDNISONE [Concomitant]
     Indication: HORMONE REPLACEMENT THERAPY
     Route: 065
     Dates: start: 20000601, end: 20040315
  6. OXYCONTIN [Concomitant]
     Indication: OSTEOARTHRITIS
     Route: 065
     Dates: start: 20001001, end: 20040315
  7. LEVOXYL [Concomitant]
     Indication: HYPOTHYROIDISM
     Route: 065
     Dates: start: 20030401, end: 20040301

REACTIONS (3)
  - MYOCARDIAL INFARCTION [None]
  - PULMONARY EMBOLISM [None]
  - RESPIRATORY FAILURE [None]
